FAERS Safety Report 10344044 (Version 1)
Quarter: 2014Q3

REPORT INFORMATION
  Report Type: Spontaneous
  Country: FI (occurrence: FI)
  Receive Date: 20140728
  Receipt Date: 20140728
  Transmission Date: 20150326
  Serious: Yes (Other)
  Sender: FDA-Public Use
  Company Number: FI-ACCORD-024932

PATIENT
  Age: 75 Year
  Sex: Male

DRUGS (12)
  1. TREXAN [Concomitant]
     Active Substance: METHOTREXATE SODIUM
     Indication: RHEUMATIC DISORDER
     Dosage: STRENGTH- 10MG
     Route: 048
  2. MONTELUKAST ACCORD [Suspect]
     Active Substance: MONTELUKAST\MONTELUKAST SODIUM
     Indication: ASTHMA
     Route: 048
     Dates: start: 20140709, end: 20140711
  3. METFOREM [Concomitant]
     Active Substance: METFORMIN HYDROCHLORIDE
     Indication: DIABETES MELLITUS
     Dosage: STRENGTH- 500 MG
     Route: 048
  4. SERETIDE [Concomitant]
     Active Substance: FLUTICASONE FUROATE\SALMETEROL XINAFOATE
     Indication: ASTHMA
     Dosage: STRENGTH-50/100 MG
     Route: 045
  5. AMLODIPIN ORION [Concomitant]
     Indication: BLOOD PRESSURE
     Dosage: STRENGTH- 10 MG
     Route: 048
  6. OXIKLORIN [Concomitant]
     Active Substance: HYDROXYCHLOROQUINE SULFATE
     Dosage: STRENGTH- 300 MG
     Route: 048
  7. CANDEXETIL [Concomitant]
     Indication: BLOOD PRESSURE
     Dosage: STRENGTH- 32 MG
     Route: 048
  8. BISOPROLOL ACTAVIS [Concomitant]
     Active Substance: BISOPROLOL
     Indication: BLOOD PRESSURE
     Dosage: STRENGTH- 5 MG
     Route: 048
  9. SALAZOPYRIN EN [Concomitant]
     Active Substance: SULFASALAZINE
     Indication: RHEUMATIC DISORDER
     Dosage: STRENGTH- 50 MG
     Route: 048
  10. DIGOXIN. [Concomitant]
     Active Substance: DIGOXIN
     Route: 048
  11. FURESIS [Concomitant]
     Active Substance: FUROSEMIDE
     Indication: BLOOD PRESSURE
     Dosage: STRENGTH- 40 MG
     Route: 048
  12. MAREVAN [Concomitant]
     Active Substance: WARFARIN SODIUM
     Dosage: STRENGTH- 3 MG
     Route: 048

REACTIONS (2)
  - Oral infection [Not Recovered/Not Resolved]
  - Pharyngitis [Not Recovered/Not Resolved]

NARRATIVE: CASE EVENT DATE: 20140710
